FAERS Safety Report 24035152 (Version 1)
Quarter: 2024Q3

REPORT INFORMATION
  Report Type: Spontaneous
  Country: US (occurrence: US)
  Receive Date: 20240701
  Receipt Date: 20240701
  Transmission Date: 20241017
  Serious: No
  Sender: ROCHE
  Company Number: US-CHEPLA-2024007786

PATIENT
  Age: 72 Year
  Sex: Female

DRUGS (1)
  1. VALGANCICLOVIR [Suspect]
     Active Substance: VALGANCICLOVIR
     Indication: Antiviral prophylaxis
     Route: 065

REACTIONS (4)
  - Creatinine renal clearance abnormal [Unknown]
  - Drug ineffective [Unknown]
  - Cytomegalovirus viraemia [Unknown]
  - Cytomegalovirus infection [Unknown]
